FAERS Safety Report 23800667 (Version 1)
Quarter: 2024Q2

REPORT INFORMATION
  Report Type: Spontaneous
  Country: US (occurrence: US)
  Receive Date: 20240430
  Receipt Date: 20240430
  Transmission Date: 20240716
  Serious: No
  Sender: FDA-Public Use
  Company Number: US-IDORSIA-007889-2024-US

PATIENT
  Age: 60 Year
  Sex: Female

DRUGS (1)
  1. QUVIVIQ [Suspect]
     Active Substance: DARIDOREXANT
     Indication: Insomnia
     Dosage: 25 MG, QD
     Route: 065

REACTIONS (3)
  - Feeling abnormal [Unknown]
  - Headache [Recovered/Resolved]
  - Therapeutic product effect incomplete [Unknown]
